FAERS Safety Report 22934223 (Version 3)
Quarter: 2024Q1

REPORT INFORMATION
  Report Type: Report from Study
  Country: US (occurrence: US)
  Receive Date: 20230912
  Receipt Date: 20240306
  Transmission Date: 20240409
  Serious: Yes (Other)
  Sender: FDA-Public Use
  Company Number: US-SA-SAC20230908001331

PATIENT
  Age: 29 Year
  Sex: Male

DRUGS (4)
  1. EFTRENONACOG ALFA [Suspect]
     Active Substance: EFTRENONACOG ALFA
     Indication: Factor IX deficiency
     Dosage: 3500 U, QW
     Route: 042
     Dates: start: 202307
  2. EFTRENONACOG ALFA [Suspect]
     Active Substance: EFTRENONACOG ALFA
     Indication: Factor IX deficiency
     Dosage: 3500 U, QW
     Route: 042
     Dates: start: 202307
  3. EFTRENONACOG ALFA [Suspect]
     Active Substance: EFTRENONACOG ALFA
     Dosage: 6640 IU+10%, QD X 14 DAYS
     Route: 042
  4. EFTRENONACOG ALFA [Suspect]
     Active Substance: EFTRENONACOG ALFA
     Dosage: 6640 IU+10%, QD X 14 DAYS
     Route: 042

REACTIONS (3)
  - Spontaneous haemorrhage [Not Recovered/Not Resolved]
  - Haemorrhage [Recovered/Resolved]
  - Product prescribing error [Unknown]

NARRATIVE: CASE EVENT DATE: 20230904
